FAERS Safety Report 10802483 (Version 1)
Quarter: 2015Q1

REPORT INFORMATION
  Report Type: Spontaneous
  Country: US (occurrence: US)
  Receive Date: 20150217
  Receipt Date: 20150217
  Transmission Date: 20150721
  Serious: No
  Sender: FDA-Public Use
  Company Number: US-AMARIN PHARMA, INC.-2014AMR000084

PATIENT
  Age: 55 Year
  Sex: Male
  Weight: 136.2 kg

DRUGS (5)
  1. PROBIOTICS [Concomitant]
     Active Substance: PROBIOTICS NOS
     Indication: GALLBLADDER DISORDER
     Route: 048
  2. VASCEPA [Suspect]
     Active Substance: ETHYL ICOSAPENTATE
     Route: 048
     Dates: start: 201410
  3. RENEW LIFE LIVER SUPPORT [Concomitant]
     Indication: PRODUCT USED FOR UNKNOWN INDICATION
     Route: 048
  4. VASCEPA [Suspect]
     Active Substance: ETHYL ICOSAPENTATE
     Indication: BLOOD TRIGLYCERIDES INCREASED
     Route: 048
     Dates: start: 201405, end: 201405
  5. ASPIRIN. [Concomitant]
     Active Substance: ASPIRIN
     Indication: HEADACHE
     Route: 065

REACTIONS (1)
  - Headache [Recovered/Resolved]
